FAERS Safety Report 11418305 (Version 2)
Quarter: 2016Q2

REPORT INFORMATION
  Report Type: Report from Study
  Country: US (occurrence: US)
  Receive Date: 20150825
  Receipt Date: 20160418
  Transmission Date: 20160815
  Serious: No
  Sender: FDA-Public Use
  Company Number: US-AMGEN-USASL2015085225

PATIENT
  Age: 10 Year
  Sex: Female
  Weight: 45.35 kg

DRUGS (1)
  1. ENBREL [Suspect]
     Active Substance: ETANERCEPT
     Indication: JUVENILE IDIOPATHIC ARTHRITIS
     Dosage: 25 MG, EVERY FOUR DAYS
     Route: 065
     Dates: start: 20140522

REACTIONS (3)
  - Abnormal behaviour [Unknown]
  - Weight increased [Unknown]
  - Inappropriate schedule of drug administration [Unknown]
